FAERS Safety Report 19357217 (Version 4)
Quarter: 2021Q2

REPORT INFORMATION
  Report Type: Spontaneous
  Country: DE (occurrence: DE)
  Receive Date: 20210602
  Receipt Date: 20210621
  Transmission Date: 20210717
  Serious: Yes (Other)
  Sender: FDA-Public Use
  Company Number: DE-ROCHE-2809878

PATIENT
  Age: 54 Year
  Sex: Female
  Weight: 79 kg

DRUGS (13)
  1. DOCETAXEL. [Suspect]
     Active Substance: DOCETAXEL
     Route: 065
     Dates: start: 20210326, end: 20210326
  2. PERTUZUMAB. [Suspect]
     Active Substance: PERTUZUMAB
     Indication: BREAST CANCER METASTATIC
     Dosage: ON THE FIRST DAY OF THE FIRST CYCLE
     Route: 042
     Dates: start: 20210325, end: 20210325
  3. DOCETAXEL. [Suspect]
     Active Substance: DOCETAXEL
     Route: 065
     Dates: start: 20210330
  4. GRANISETRON [Concomitant]
     Active Substance: GRANISETRON
     Indication: PREMEDICATION
     Dosage: AMPULE
     Route: 042
  5. TORASEMIDE [Concomitant]
     Active Substance: TORSEMIDE
  6. TRASTUZUMAB. [Suspect]
     Active Substance: TRASTUZUMAB
     Indication: BREAST CANCER METASTATIC
     Dosage: ON THE SECOND DAY OF THE FIRST CYCLE?420 MG
     Route: 042
     Dates: start: 20210325, end: 2021
  7. DOCETAXEL. [Suspect]
     Active Substance: DOCETAXEL
     Indication: BREAST CANCER METASTATIC
     Route: 065
     Dates: start: 20210325, end: 20210325
  8. KANJINTI [Suspect]
     Active Substance: TRASTUZUMAB-ANNS
     Indication: PRODUCT USED FOR UNKNOWN INDICATION
     Route: 065
  9. DEXAMETHASON [Concomitant]
     Active Substance: DEXAMETHASONE
     Dosage: BEFORE INFUSION OF TRASTUZUMAB, PERJETA FOR 15 MINUTES
     Route: 042
  10. HISTAKUT [Concomitant]
     Active Substance: DIMETHINDENE MALEATE
     Dosage: BEFORE INFUSION OF TRASTUZUMAB
     Route: 042
  11. FEBUXOSTAT. [Concomitant]
     Active Substance: FEBUXOSTAT
  12. LAXOFALK [Concomitant]
  13. PANTOPRAZOLE [Concomitant]
     Active Substance: PANTOPRAZOLE

REACTIONS (6)
  - Folate deficiency [Unknown]
  - Metastases to bone marrow [Unknown]
  - Acute kidney injury [Recovered/Resolved]
  - Infusion related reaction [Recovering/Resolving]
  - Haemolytic anaemia [Recovered/Resolved]
  - Acute hepatic failure [Recovered/Resolved]

NARRATIVE: CASE EVENT DATE: 20210325
